FAERS Safety Report 11493215 (Version 1)
Quarter: 2015Q3

REPORT INFORMATION
  Report Type: Other
  Country: TH (occurrence: TH)
  Receive Date: 20150911
  Receipt Date: 20150911
  Transmission Date: 20151125
  Serious: No
  Sender: FDA-Public Use
  Company Number: TH-LUPIN PHARMACEUTICALS INC.-2015-02566

PATIENT
  Age: 24 Year
  Sex: Female

DRUGS (8)
  1. ISONIAZID. [Suspect]
     Active Substance: ISONIAZID
     Indication: PULMONARY TUBERCULOSIS
  2. ETHAMBUTOL [Suspect]
     Active Substance: ETHAMBUTOL HYDROCHLORIDE
     Indication: DISSEMINATED TUBERCULOSIS
     Route: 065
  3. RIFAMPIN. [Suspect]
     Active Substance: RIFAMPIN
     Indication: PULMONARY TUBERCULOSIS
  4. PYRAZINAMIDE. [Suspect]
     Active Substance: PYRAZINAMIDE
     Indication: PULMONARY TUBERCULOSIS
  5. ISONIAZID. [Suspect]
     Active Substance: ISONIAZID
     Indication: DISSEMINATED TUBERCULOSIS
     Route: 065
  6. PYRAZINAMIDE. [Suspect]
     Active Substance: PYRAZINAMIDE
     Indication: DISSEMINATED TUBERCULOSIS
     Route: 065
  7. RIFAMPIN. [Suspect]
     Active Substance: RIFAMPIN
     Indication: DISSEMINATED TUBERCULOSIS
     Route: 065
  8. ETHAMBUTOL [Suspect]
     Active Substance: ETHAMBUTOL HYDROCHLORIDE
     Indication: PULMONARY TUBERCULOSIS

REACTIONS (1)
  - Hepatotoxicity [Recovered/Resolved]
